FAERS Safety Report 12146409 (Version 1)
Quarter: 2016Q1

REPORT INFORMATION
  Report Type: Spontaneous
  Country: CN (occurrence: CN)
  Receive Date: 20160304
  Receipt Date: 20160304
  Transmission Date: 20160526
  Serious: Yes (Other)
  Sender: FDA-Public Use
  Company Number: CN-SEBELA IRELAND LIMITED-2016SEB00045

PATIENT
  Age: 68 Year
  Sex: Male

DRUGS (5)
  1. ASPIRIN. [Concomitant]
     Active Substance: ASPIRIN
  2. DIGOXIN. [Concomitant]
     Active Substance: DIGOXIN
  3. FUROSEMIDE. [Concomitant]
     Active Substance: FUROSEMIDE
  4. ALLOPURINOL. [Suspect]
     Active Substance: ALLOPURINOL
     Indication: HYPERURICAEMIA
     Dosage: 100 MG, 3X/DAY
     Route: 065
  5. METOPROLOL. [Concomitant]
     Active Substance: METOPROLOL

REACTIONS (5)
  - Stevens-Johnson syndrome [Unknown]
  - Toxic epidermal necrolysis [Unknown]
  - Coronary artery disease [Unknown]
  - Diabetes mellitus [Unknown]
  - Renal impairment [Unknown]
